FAERS Safety Report 16003430 (Version 2)
Quarter: 2019Q1

REPORT INFORMATION
  Report Type: Spontaneous
  Country: IT (occurrence: IT)
  Receive Date: 20190226
  Receipt Date: 20190318
  Transmission Date: 20190418
  Serious: Yes (Hospitalization, Other)
  Sender: FDA-Public Use
  Company Number: IT-009507513-1902ITA008913

PATIENT
  Age: 63 Year
  Sex: Female
  Weight: 75 kg

DRUGS (17)
  1. RANITIDINE. [Concomitant]
     Active Substance: RANITIDINE
     Dosage: 1 (150 MILLIGRAM) TABLET, AT 8:00 A.M. AND AT 10:00 P.M.
     Route: 048
  2. SODIUM BICARBONATE. [Concomitant]
     Active Substance: SODIUM BICARBONATE
     Dosage: UNK, AFTER MAIN MEALS
     Route: 048
  3. SENNA [Concomitant]
     Active Substance: SENNA LEAF\SENNOSIDES\SENNOSIDES A AND B
     Dosage: 2 TABLETS AT 03:00 P.M.
     Route: 048
  4. KEYTRUDA [Suspect]
     Active Substance: PEMBROLIZUMAB
     Indication: LUNG ADENOCARCINOMA
     Dosage: 200 MILLIGRAM, EVERY 21 DAYS
     Route: 042
     Dates: start: 20181214
  5. FENTANYL. [Concomitant]
     Active Substance: FENTANYL
     Dosage: 1 SUBLINGUAL TABLET AS NEEDED, IN CASE OF NOT CONTROLLED PAIN NRS (NUMERICAL RATING SCALE)} 5 (MAX 3
     Route: 060
  6. DELORAZEPAM [Concomitant]
     Active Substance: DELORAZEPAM
     Dosage: 6 DROPS AT 8:00 P.M.
  7. BUTYLSCOPOLAMINE BROMIDE [Concomitant]
     Active Substance: BUTYLSCOPOLAMINE BROMIDE
     Dosage: 1 (10 MG) TABLET ORALLY OR 1 VIAL INTRAMUSCULARLY, MAX 2 DAILY
  8. KEYTRUDA [Suspect]
     Active Substance: PEMBROLIZUMAB
     Dosage: 200 MILLIGRAM, EVERY 21 DAYS
     Route: 042
     Dates: start: 20190104
  9. RAMIPRIL. [Concomitant]
     Active Substance: RAMIPRIL
     Indication: HYPERTENSION
     Dosage: 1 TABLET (5MG), AT 8:00 A.M.
     Route: 048
     Dates: start: 20181108
  10. ENOXAPARIN SODIUM. [Concomitant]
     Active Substance: ENOXAPARIN SODIUM
     Dosage: 10000 IU VIAL, EVERY 12 HOURS AT 8:00 A.M. AND AT 08:00 P.M.
     Route: 058
  11. KEYTRUDA [Suspect]
     Active Substance: PEMBROLIZUMAB
     Dosage: 200 MILLIGRAM, EVERY 21 DAYS
     Route: 042
     Dates: start: 20190124, end: 20190124
  12. AMIODARONE [Concomitant]
     Active Substance: AMIODARONE
     Indication: ATRIAL FIBRILLATION
     Dosage: 1 TABLET (200 MILLIGRAM), AT 8:00 A.M.
     Route: 048
     Dates: start: 20181206
  13. METOCLOPRAMIDE. [Concomitant]
     Active Substance: METOCLOPRAMIDE
     Dosage: 1 (10 MG) TABLET, AT 8:00 A.M.
     Route: 048
  14. VITAMIN D [Concomitant]
     Active Substance: CHOLECALCIFEROL
     Dosage: 1 (100000 IU) VIAL, ON A PIECE OF BREAD ONCE A MONTH
  15. ENOXAPARIN SODIUM. [Concomitant]
     Active Substance: ENOXAPARIN SODIUM
     Indication: PULMONARY EMBOLISM
     Dosage: 2 VIALS (10000 INTERNATIONAL UNITS)
     Route: 048
     Dates: start: 20181108
  16. FENTANYL. [Concomitant]
     Active Substance: FENTANYL
     Dosage: DOSE REPORTED AS: 37.5 MCG/H, EVERY 72H, TO BE CHANGED ON 27-JAN-2019 AT 8:00 A.M.
  17. ACETAMINOPHEN. [Concomitant]
     Active Substance: ACETAMINOPHEN
     Dosage: IN CASE OF PAIN NRS (NUMERICAL RATING SCALE)}4 ,MAX 3 DAILY, EVERY 8 HOURS

REACTIONS (8)
  - T-lymphocyte count increased [Unknown]
  - Bone marrow failure [Unknown]
  - Neutropenia [Unknown]
  - Thrombocytopenia [Not Recovered/Not Resolved]
  - Lymphopenia [Unknown]
  - Anaemia [Unknown]
  - Viral infection [Unknown]
  - Inappropriate schedule of product administration [Unknown]

NARRATIVE: CASE EVENT DATE: 20190124
